FAERS Safety Report 4330031-1 (Version None)
Quarter: 2004Q1

REPORT INFORMATION
  Report Type: 
  Country: None (occurrence: None)
  Receive Date: 20040329
  Receipt Date: 20040318
  Transmission Date: 20041129
  Serious: Yes (Life-Threatening)
  Sender: FDA-Public Use
  Company Number: 2004SE01561

PATIENT
  Age: 43 Year
  Sex: Male
  Weight: 70 kg

DRUGS (1)
  1. SEROQUEL [Suspect]
     Indication: DISSOCIATIVE DISORDER
     Dosage: 100 MG QD PO
     Route: 048
     Dates: start: 20040309

REACTIONS (3)
  - CIRCULATORY COLLAPSE [None]
  - HYPOTENSION [None]
  - LOSS OF CONSCIOUSNESS [None]
